FAERS Safety Report 14338144 (Version 1)
Quarter: 2017Q4

REPORT INFORMATION
  Report Type: Spontaneous
  Country: US (occurrence: US)
  Receive Date: 20171228
  Receipt Date: 20171228
  Transmission Date: 20180321
  Serious: No
  Sender: FDA-Public Use
  Company Number: None

PATIENT
  Age: 64 Year
  Sex: Female

DRUGS (1)
  1. STELARA [Suspect]
     Active Substance: USTEKINUMAB
     Indication: PSORIASIS
     Dosage: FREQUENCY - EVERY 12 WEEKS
     Route: 058
     Dates: start: 20170928, end: 20170928

REACTIONS (2)
  - Psoriasis [None]
  - Skin lesion [None]

NARRATIVE: CASE EVENT DATE: 20171010
